FAERS Safety Report 6091459-5 (Version None)
Quarter: 2009Q1

REPORT INFORMATION
  Report Type: 
  Country: None (occurrence: None)
  Receive Date: 20090219
  Receipt Date: 20090219
  Transmission Date: 20090719
  Serious: Yes (Life-Threatening, Hospitalization, Disabling)
  Sender: FDA-Public Use
  Company Number: None

PATIENT
  Sex: Female
  Weight: 56.6996 kg

DRUGS (1)
  1. FOSAMAX [Suspect]
     Indication: OSTEOPENIA
     Dosage: 70 MGM ONCE A WEEK ORAL (D/C SPRING 2008)
     Route: 048

REACTIONS (6)
  - FEMUR FRACTURE [None]
  - IMPAIRED HEALING [None]
  - OSTEOGENESIS IMPERFECTA [None]
  - PATHOLOGICAL FRACTURE [None]
  - PROCEDURAL COMPLICATION [None]
  - STRESS FRACTURE [None]
